FAERS Safety Report 17186811 (Version 3)
Quarter: 2020Q1

REPORT INFORMATION
  Report Type: Spontaneous
  Country: JP (occurrence: JP)
  Receive Date: 20191220
  Receipt Date: 20200312
  Transmission Date: 20200409
  Serious: Yes (Hospitalization, Disabling, Other)
  Sender: FDA-Public Use
  Company Number: JP-ASTRAZENECA-2019SE90645

PATIENT
  Age: 28829 Day
  Sex: Female
  Weight: 60 kg

DRUGS (18)
  1. AZILVA [Concomitant]
     Active Substance: AZILSARTAN KAMEDOXOMIL
     Indication: HYPERTENSION
  2. LIVALO [Concomitant]
     Active Substance: PITAVASTATIN CALCIUM
     Indication: DYSLIPIDAEMIA
  3. TEPRENONE [Concomitant]
     Active Substance: TEPRENONE
     Indication: NON-SMALL CELL LUNG CANCER
     Dates: start: 20190603, end: 20190927
  4. BISOPROLOL [Concomitant]
     Active Substance: BISOPROLOL
     Indication: HYPERTENSION
  5. SUREPOST [Concomitant]
     Active Substance: REPAGLINIDE
     Indication: DIABETES MELLITUS
  6. IRESSA [Suspect]
     Active Substance: GEFITINIB
     Indication: LUNG ADENOCARCINOMA
     Route: 048
     Dates: start: 20180319, end: 20180710
  7. ZETIA [Concomitant]
     Active Substance: EZETIMIBE
     Indication: DYSLIPIDAEMIA
  8. NIFEDIPINE. [Concomitant]
     Active Substance: NIFEDIPINE
     Indication: HYPERTENSION
  9. LYRICA [Concomitant]
     Active Substance: PREGABALIN
     Indication: MUSCLE SPASMS
  10. FUROSEMIDE. [Concomitant]
     Active Substance: FUROSEMIDE
     Indication: NEPHROSCLEROSIS
  11. TAGRISSO [Suspect]
     Active Substance: OSIMERTINIB
     Indication: NON-SMALL CELL LUNG CANCER
     Route: 048
     Dates: start: 20190603, end: 20190616
  12. TAGRISSO [Suspect]
     Active Substance: OSIMERTINIB
     Indication: NON-SMALL CELL LUNG CANCER
     Route: 048
     Dates: start: 20190704, end: 20190718
  13. MINOCYCLINE HYDROCHLORIDE. [Concomitant]
     Active Substance: MINOCYCLINE HYDROCHLORIDE
     Indication: NON-SMALL CELL LUNG CANCER
     Dates: start: 20190603, end: 20190927
  14. EPERISONE HYDROCHLORIDE [Concomitant]
     Active Substance: EPERISONE HYDROCHLORIDE
     Indication: MUSCLE SPASMS
  15. TAGRISSO [Suspect]
     Active Substance: OSIMERTINIB
     Indication: NON-SMALL CELL LUNG CANCER
     Route: 048
     Dates: start: 20190802, end: 20190927
  16. EQUA [Concomitant]
     Active Substance: VILDAGLIPTIN
     Indication: DIABETES MELLITUS
  17. NICORANDIL [Concomitant]
     Active Substance: NICORANDIL
     Indication: ANGINA PECTORIS
  18. BAYASPIRIN [Concomitant]
     Active Substance: ASPIRIN
     Indication: ANGINA PECTORIS

REACTIONS (11)
  - Cellulitis [Not Recovered/Not Resolved]
  - Electrocardiogram QT prolonged [Recovered/Resolved]
  - Stomatitis [Recovered/Resolved]
  - Malignant neoplasm progression [Unknown]
  - Paronychia [Not Recovered/Not Resolved]
  - Platelet count decreased [Recovered/Resolved]
  - Renal impairment [Recovered/Resolved]
  - Hepatic function abnormal [Recovering/Resolving]
  - Decreased appetite [Recovered/Resolved]
  - Skin ulcer [Recovering/Resolving]
  - Hyperkalaemia [Recovered/Resolved]

NARRATIVE: CASE EVENT DATE: 20190228
